FAERS Safety Report 4784861-2 (Version None)
Quarter: 2005Q3

REPORT INFORMATION
  Report Type: 
  Country: None (occurrence: None)
  Receive Date: 20050929
  Receipt Date: 20050929
  Transmission Date: 20060218
  Serious: Yes (Hospitalization)
  Sender: FDA-Public Use
  Company Number: None

PATIENT
  Sex: Female
  Weight: 73.9 kg

DRUGS (8)
  1. VALSARTAN/HYDROCHLOROTHIAZIDE [Suspect]
     Indication: DIURETIC THERAPY
     Dates: end: 20050101
  2. VALSARTAN/HYDROCHLOROTHIAZIDE [Suspect]
     Indication: HYPERTENSION
     Dates: end: 20050101
  3. ONDANSETRON [Concomitant]
     Dosage: 2.5 MG AS DIRECTED
     Dates: end: 20050101
  4. CHOLESTYRAMINE [Concomitant]
  5. ATENOLOL [Concomitant]
  6. HUMULIN [Concomitant]
  7. HUMALOG [Concomitant]
  8. METOLAZONE [Suspect]
     Indication: DIURETIC THERAPY
     Dates: end: 20050101

REACTIONS (5)
  - CARDIAC FAILURE CONGESTIVE [None]
  - DIABETES MELLITUS [None]
  - EPISTAXIS [None]
  - JAUNDICE CHOLESTATIC [None]
  - RENAL FAILURE [None]
